FAERS Safety Report 9288256 (Version 1)
Quarter: 2013Q2

REPORT INFORMATION
  Report Type: Spontaneous
  Country: US (occurrence: None)
  Receive Date: 20130513
  Receipt Date: 20130513
  Transmission Date: 20140414
  Serious: Yes (Other)
  Sender: FDA-Public Use
  Company Number: None

PATIENT
  Age: 77 Year
  Sex: Female

DRUGS (12)
  1. TERIPARATIDE [Suspect]
     Indication: OSTEOPOROSIS
     Route: 058
  2. WARFARIN [Concomitant]
  3. DIOVAN [Concomitant]
  4. ASPIRIN [Concomitant]
  5. NUCYNTA [Concomitant]
  6. SOTALOL [Concomitant]
  7. MIRALAX [Concomitant]
  8. FISH OIL [Concomitant]
  9. NORCO [Concomitant]
  10. VITAMIN C AND D [Concomitant]
  11. CALCIUM [Concomitant]
  12. FORTEO [Concomitant]

REACTIONS (5)
  - Fatigue [None]
  - Constipation [None]
  - Decreased appetite [None]
  - Vomiting [None]
  - Hypercalcaemia [None]
